FAERS Safety Report 15270063 (Version 3)
Quarter: 2018Q4

REPORT INFORMATION
  Report Type: Spontaneous
  Country: US (occurrence: US)
  Receive Date: 20180813
  Receipt Date: 20181022
  Transmission Date: 20190204
  Serious: No
  Sender: FDA-Public Use
  Company Number: US-PFIZER INC-2018320950

PATIENT
  Sex: Male

DRUGS (4)
  1. LYRICA [Suspect]
     Active Substance: PREGABALIN
     Indication: SPINAL CORD INJURY
     Dosage: 150 MG, 1X/DAY(150MG AT NIGHT)
  2. LYRICA [Suspect]
     Active Substance: PREGABALIN
     Dosage: 150 MG, UNK
  3. LYRICA [Suspect]
     Active Substance: PREGABALIN
     Dosage: 225 MG, UNK
  4. LYRICA [Suspect]
     Active Substance: PREGABALIN
     Indication: NEUROPATHY PERIPHERAL
     Dosage: 75 MG, UNK

REACTIONS (5)
  - Withdrawal syndrome [Unknown]
  - Drug ineffective [Unknown]
  - Feeling abnormal [Unknown]
  - Condition aggravated [Unknown]
  - Malaise [Unknown]
